FAERS Safety Report 5211944-5 (Version None)
Quarter: 2007Q1

REPORT INFORMATION
  Report Type: 
  Country: None (occurrence: None)
  Receive Date: 20070116
  Receipt Date: 20061227
  Transmission Date: 20070707
  Serious: Yes (Other)
  Sender: FDA-Public Use
  Company Number: 8020907

PATIENT
  Age: 35 Year
  Sex: Female
  Weight: 84 kg

DRUGS (3)
  1. KEPPRA [Suspect]
     Dosage: 500 MG /D
     Dates: start: 20050829
  2. ORFIRIL /00228501/ [Concomitant]
  3. METAMIZOLE [Concomitant]

REACTIONS (2)
  - ASTROCYTOMA [None]
  - NEOPLASM RECURRENCE [None]
